FAERS Safety Report 6458168-1 (Version None)
Quarter: 2009Q4

REPORT INFORMATION
  Report Type: 
  Country: None (occurrence: None)
  Receive Date: 20091125
  Receipt Date: 20091110
  Transmission Date: 20100525
  Serious: Yes (Death)
  Sender: FDA-Public Use
  Company Number: PL-GENENTECH-294974

PATIENT
  Age: 52 Year
  Sex: Female

DRUGS (1)
  1. AVASTIN [Suspect]
     Indication: ADENOCARCINOMA
     Dosage: 15 MG/KG, Q3W
     Route: 065
     Dates: start: 20071201, end: 20080101

REACTIONS (1)
  - DEATH [None]
